FAERS Safety Report 8690365 (Version 2)
Quarter: 2012Q4

REPORT INFORMATION
  Report Type: 
  Country: US (occurrence: US)
  Receive Date: 20120727
  Receipt Date: 20120914
  Transmission Date: 20130627
  Serious: No
  Sender: FDA-Public Use
  Company Number: US-ASTRAZENECA-2012SE24904

PATIENT
  Age: 47 Year
  Sex: Female
  Weight: 95.3 kg

DRUGS (13)
  1. SEROQUEL [Suspect]
     Indication: BIPOLAR DISORDER
     Route: 048
  2. LAMICTAL [Concomitant]
  3. TOPOMAX [Concomitant]
  4. CENTRUM [Concomitant]
  5. VALIUM [Concomitant]
  6. GREEN COFFEE BEAN EXTRACT [Concomitant]
  7. SEVEN KETO [Concomitant]
  8. SORSKOLIN [Concomitant]
  9. SAFFRON [Concomitant]
  10. RASPBERRY KETONE [Concomitant]
  11. MANGO [Concomitant]
  12. GREEN TEA LEAF [Concomitant]
  13. SUPER B COMPLEX [Concomitant]

REACTIONS (11)
  - Nasopharyngitis [Unknown]
  - Cognitive disorder [Unknown]
  - Disturbance in attention [Unknown]
  - Amnesia [Unknown]
  - Mania [Unknown]
  - Mood swings [Unknown]
  - Social avoidant behaviour [Unknown]
  - Depression [Unknown]
  - Bipolar disorder [Unknown]
  - Weight increased [Unknown]
  - Drug ineffective [Unknown]
